FAERS Safety Report 13901880 (Version 1)
Quarter: 2017Q3

REPORT INFORMATION
  Report Type: Report from Study
  Country: CN (occurrence: CN)
  Receive Date: 20170824
  Receipt Date: 20170824
  Transmission Date: 20171127
  Serious: Yes (Other)
  Sender: FDA-Public Use
  Company Number: CN-ROCHE-1982529

PATIENT

DRUGS (7)
  1. HEPARIN [Concomitant]
     Active Substance: HEPARIN SODIUM
     Indication: ACUTE MYOCARDIAL INFARCTION
     Dosage: 5000U THROUGH VEIN PUSHING INJECTION
     Route: 065
  2. ALTEPLASE. [Suspect]
     Active Substance: ALTEPLASE
     Dosage: IN 0.5 HOUR
     Route: 041
  3. ASPIRIN. [Concomitant]
     Active Substance: ASPIRIN
     Dosage: 0.3G, CHEWING
     Route: 065
  4. ALTEPLASE. [Suspect]
     Active Substance: ALTEPLASE
     Indication: ACUTE MYOCARDIAL INFARCTION
     Dosage: THROUGH VEIN PUSHING INJECTION.
     Route: 042
  5. CLOPIDOGREL [Concomitant]
     Active Substance: CLOPIDOGREL BISULFATE
     Dosage: 0.3G, CHEWING
     Route: 065
  6. ATORVASTATIN [Concomitant]
     Active Substance: ATORVASTATIN
     Route: 048
  7. ALTEPLASE. [Suspect]
     Active Substance: ALTEPLASE
     Dosage: 35MG THROUGH VEIN PUSHING INJECTION IN 1 HOUR
     Route: 042

REACTIONS (1)
  - Upper gastrointestinal haemorrhage [Unknown]
